FAERS Safety Report 8866143 (Version 3)
Quarter: 2013Q2

REPORT INFORMATION
  Report Type: Report from Study
  Country: US (occurrence: US)
  Receive Date: 20121025
  Receipt Date: 20130408
  Transmission Date: 20140414
  Serious: Yes (Hospitalization)
  Sender: FDA-Public Use
  Company Number: US-ROCHE-1146997

PATIENT
  Age: 56 Year
  Sex: Male
  Weight: 74.6 kg

DRUGS (12)
  1. ERLOTINIB [Suspect]
     Indication: HEPATIC CANCER
     Route: 048
     Dates: start: 20120705, end: 20121010
  2. BEVACIZUMAB [Suspect]
     Indication: HEPATIC CANCER
     Route: 042
     Dates: start: 20120705, end: 20120911
  3. AMITRIPTYLINE [Concomitant]
     Route: 065
     Dates: start: 20120814
  4. DEXAMETHASONE [Concomitant]
     Route: 065
     Dates: start: 20120814
  5. LIDOCAINE HYDROCHLORIDE [Concomitant]
     Route: 065
     Dates: start: 20121010
  6. MINOCYCLINE [Concomitant]
     Route: 065
     Dates: start: 20120724
  7. NADOLOL [Concomitant]
     Route: 065
     Dates: start: 20120925
  8. OXYCODONE [Concomitant]
     Route: 065
     Dates: start: 20120731
  9. DECADRON [Concomitant]
  10. LACTULOSE [Concomitant]
  11. AUGMENTIN [Concomitant]
  12. LISINOPRIL/HCTZ [Concomitant]
     Route: 065
     Dates: start: 20120925

REACTIONS (2)
  - Hepatic encephalopathy [Unknown]
  - Confusional state [Unknown]
